FAERS Safety Report 23246186 (Version 2)
Quarter: 2023Q4

REPORT INFORMATION
  Report Type: Spontaneous
  Country: US (occurrence: US)
  Receive Date: 20231130
  Receipt Date: 20231219
  Transmission Date: 20240110
  Serious: Yes (Hospitalization, Other)
  Sender: FDA-Public Use
  Company Number: US-MYLANLABS-2023M1126877

PATIENT
  Age: 15 Year
  Sex: Female

DRUGS (4)
  1. METHOTREXATE [Interacting]
     Active Substance: METHOTREXATE
     Indication: Acute lymphocytic leukaemia
     Dosage: UNK, CYCLE, CAPIZZI CYCLICAL METHOTREXATE STARTING FROM DOSE 100MG/M2 AND ESCALATING BY 50MG/M2
     Route: 042
  2. METHOTREXATE [Interacting]
     Active Substance: METHOTREXATE
     Dosage: UNK
     Route: 065
  3. ESOMEPRAZOLE [Interacting]
     Active Substance: ESOMEPRAZOLE
     Indication: Gastrooesophageal reflux disease
     Dosage: UNK
     Route: 065
  4. PEGASPARGASE [Concomitant]
     Active Substance: PEGASPARGASE
     Indication: Acute lymphocytic leukaemia
     Dosage: UNK, 2500IU/M2
     Route: 065

REACTIONS (5)
  - Drug interaction [Recovered/Resolved]
  - Toxicity to various agents [Recovered/Resolved]
  - Renal failure [Recovered/Resolved]
  - Hepatic failure [Recovered/Resolved]
  - Pancreatitis [Recovered/Resolved]
